FAERS Safety Report 20632375 (Version 1)
Quarter: 2022Q1

REPORT INFORMATION
  Report Type: Spontaneous
  Country: US (occurrence: US)
  Receive Date: 20220324
  Receipt Date: 20220324
  Transmission Date: 20220423
  Serious: Yes (Hospitalization)
  Sender: FDA-Public Use
  Company Number: US-Covis Pharma GmbH-2022COV00826

PATIENT
  Age: 74 Year
  Sex: Female
  Weight: 102.06 kg

DRUGS (3)
  1. BETAPACE [Suspect]
     Active Substance: SOTALOL HYDROCHLORIDE
     Indication: Heart rate irregular
     Dosage: TWICE A DAY, EVERY 12 HOURS
     Route: 048
  2. TIKOSYN [Suspect]
     Active Substance: DOFETILIDE
     Indication: Heart rate irregular
     Dosage: TWICE A DAY, EVERY 12 HOURS
     Route: 048
  3. DOFETILIDE [Suspect]
     Active Substance: DOFETILIDE
     Indication: Heart rate irregular

REACTIONS (3)
  - Arrhythmia [Unknown]
  - Heart rate increased [Unknown]
  - Drug ineffective [Unknown]
